FAERS Safety Report 7865083-5 (Version None)
Quarter: 2011Q4

REPORT INFORMATION
  Report Type: 
  Country: None (occurrence: None)
  Receive Date: 20111028
  Receipt Date: 20101005
  Transmission Date: 20120403
  Serious: Yes (Hospitalization)
  Sender: FDA-Public Use
  Company Number: US-GLAXOSMITHKLINE-A0886035A

PATIENT
  Age: 67 Year
  Sex: Female
  Weight: 62.3 kg

DRUGS (1)
  1. ADVAIR DISKUS 100/50 [Suspect]

REACTIONS (1)
  - PNEUMONIA [None]
